FAERS Safety Report 8596039-5 (Version None)
Quarter: 2012Q3

REPORT INFORMATION
  Report Type: 
  Country: None (occurrence: None)
  Receive Date: 20120815
  Receipt Date: 20120813
  Transmission Date: 20120928
  Serious: Yes (Other)
  Sender: FDA-Public Use
  Company Number: US-ROCHE-791305

PATIENT
  Sex: Male
  Weight: 61.29 kg

DRUGS (5)
  1. AMNESTEEM [Suspect]
     Indication: PRODUCT USED FOR UNKNOWN INDICATION
     Route: 048
     Dates: start: 20061004, end: 20061106
  2. IMODIUM A-D [Concomitant]
  3. DIFFERIN [Concomitant]
  4. CLINDA [Concomitant]
  5. ACCUTANE [Suspect]
     Indication: ACNE
     Route: 065
     Dates: start: 20061001, end: 20061201

REACTIONS (6)
  - CROHN'S DISEASE [None]
  - IRRITABLE BOWEL SYNDROME [None]
  - COLITIS ULCERATIVE [None]
  - ANXIETY [None]
  - ASPARTATE AMINOTRANSFERASE INCREASED [None]
  - INFLAMMATORY BOWEL DISEASE [None]
